FAERS Safety Report 8518861-3 (Version None)
Quarter: 2012Q3

REPORT INFORMATION
  Report Type: 
  Country: None (occurrence: None)
  Receive Date: 20120709
  Receipt Date: 20120703
  Transmission Date: 20120928
  Serious: Yes (Other)
  Sender: FDA-Public Use
  Company Number: 2012032456

PATIENT
  Sex: Female

DRUGS (2)
  1. AMOXICILLIN AND CLAVULANATE POTASSIUM [Suspect]
     Dosage: (875 MG  BID, THERAPY START DATE: 26-JUN-2012)
  2. HIZENTRA [Suspect]
     Indication: KIDNEY INFECTION
     Dosage: (SUBCUTANEOUS), (THERAPY START DATE: 27-JUN-2012 SUBCUTANEOUS)
     Route: 058

REACTIONS (4)
  - KIDNEY INFECTION [None]
  - NAUSEA [None]
  - SINUSITIS [None]
  - INJECTION SITE MASS [None]
